FAERS Safety Report 20837842 (Version 1)
Quarter: 2022Q2

REPORT INFORMATION
  Report Type: Spontaneous
  Country: US (occurrence: US)
  Receive Date: 20220517
  Receipt Date: 20220517
  Transmission Date: 20220721
  Serious: No
  Sender: FDA-Public Use
  Company Number: US-ALLERGAN-2125044US

PATIENT
  Age: 36 Year

DRUGS (1)
  1. KYBELLA [Suspect]
     Active Substance: DEOXYCHOLIC ACID
     Indication: Product used for unknown indication
     Dosage: UNK, SINGLE
     Route: 058
     Dates: start: 20210702, end: 20210702

REACTIONS (5)
  - Thermal burn [Unknown]
  - Pain [Unknown]
  - Erythema [Unknown]
  - Swelling [Unknown]
  - Vascular injury [Unknown]
